FAERS Safety Report 5441144-5 (Version None)
Quarter: 2007Q3

REPORT INFORMATION
  Report Type: 
  Country: None (occurrence: None)
  Receive Date: 20070831
  Receipt Date: 20070821
  Transmission Date: 20080115
  Serious: Yes (Hospitalization)
  Sender: FDA-Public Use
  Company Number: US-PFIZER INC-2007068794

PATIENT
  Age: 52 Year
  Sex: Female
  Weight: 57.5 kg

DRUGS (1)
  1. SUTENT [Suspect]
     Indication: ENDOMETRIAL CANCER
     Route: 048

REACTIONS (6)
  - HYPERTENSION [None]
  - HYPOALBUMINAEMIA [None]
  - HYPOCALCAEMIA [None]
  - HYPOKALAEMIA [None]
  - RENAL PAIN [None]
  - VOMITING [None]
